FAERS Safety Report 12991081 (Version 1)
Quarter: 2016Q4

REPORT INFORMATION
  Report Type: Spontaneous
  Country: US (occurrence: US)
  Receive Date: 20161201
  Receipt Date: 20161201
  Transmission Date: 20170207
  Serious: Yes (Other)
  Sender: FDA-Public Use
  Company Number: US-CLINIGEN GROUP PLC/ CLINIGEN HEALTHCARE LTD-E2B_00000594

PATIENT
  Age: 50 Year
  Sex: Female
  Weight: 75.3 kg

DRUGS (20)
  1. MSM [Concomitant]
     Active Substance: DIMETHYL SULFONE
  2. COMBIVENT [Concomitant]
     Active Substance: ALBUTEROL SULFATE\IPRATROPIUM BROMIDE
  3. ETHYOL [Suspect]
     Active Substance: AMIFOSTINE
     Indication: RADIOTHERAPY
     Dosage: 3:5 DAYS
     Route: 058
     Dates: start: 20060530, end: 20060607
  4. UNKNOWN CHEMOTHERAPY DRUG [Concomitant]
     Active Substance: UNSPECIFIED INGREDIENT
  5. VICODIN [Concomitant]
     Active Substance: ACETAMINOPHEN\HYDROCODONE BITARTRATE
     Dosage: PRN FOR PAIN
  6. COMPAZINE [Concomitant]
     Active Substance: PROCHLORPERAZINE MALEATE
     Route: 048
  7. IVY EXTRACT [Concomitant]
     Active Substance: IVY EXTRACT
  8. LASIX [Concomitant]
     Active Substance: FUROSEMIDE
     Dosage: PRN
  9. VITAMIN D [Concomitant]
     Active Substance: CHOLECALCIFEROL
  10. DECADRON [Concomitant]
     Active Substance: DEXAMETHASONE
  11. RADIATION THERAPY [Concomitant]
     Active Substance: RADIATION THERAPY
     Dates: start: 20060523
  12. VITAMIN B12 [Concomitant]
     Active Substance: CYANOCOBALAMIN
  13. BENADRYL [Concomitant]
     Active Substance: DIPHENHYDRAMINE HYDROCHLORIDE
     Indication: DYSPNOEA
     Dosage: PRIOR TO CHEMOTHERAPY 1 TIME PER WEEK
  14. ALBUTEROL INHALER [Concomitant]
     Active Substance: ALBUTEROL
     Dosage: 4 TIMES A DAY PRN
  15. COENZYME Q10 [Concomitant]
     Active Substance: UBIDECARENONE
  16. GINKO BILOBA [Concomitant]
     Active Substance: GINKGO
  17. ALPRAZOLAMO [Concomitant]
  18. ALBUTEROL SULFATE. [Concomitant]
     Active Substance: ALBUTEROL SULFATE
  19. ADVAIR HFA [Concomitant]
     Active Substance: FLUTICASONE PROPIONATE\SALMETEROL XINAFOATE
  20. REGLAN [Concomitant]
     Active Substance: METOCLOPRAMIDE HYDROCHLORIDE

REACTIONS (3)
  - Rash [Recovering/Resolving]
  - Injection site reaction [Recovering/Resolving]
  - Pneumonia [Unknown]

NARRATIVE: CASE EVENT DATE: 20060609
